FAERS Safety Report 6716429-2 (Version None)
Quarter: 2010Q2

REPORT INFORMATION
  Report Type: 
  Country: None (occurrence: None)
  Receive Date: 20100507
  Receipt Date: 20100428
  Transmission Date: 20101027
  Serious: Yes (Hospitalization)
  Sender: FDA-Public Use
  Company Number: US-ROCHE-701490

PATIENT
  Sex: Male
  Weight: 71.4 kg

DRUGS (2)
  1. BEVACIZUMAB [Suspect]
     Dosage: 1009 UNK, Q3W
     Route: 042
     Dates: start: 20100407
  2. RO 5398760 (ANTI-NRP1) [Suspect]
     Dosage: 2422 UNK, Q3W
     Route: 042
     Dates: start: 20100407

REACTIONS (1)
  - PURPURA [None]
